FAERS Safety Report 23131476 (Version 1)
Quarter: 2023Q4

REPORT INFORMATION
  Report Type: Spontaneous
  Country: US (occurrence: US)
  Receive Date: 20231031
  Receipt Date: 20231031
  Transmission Date: 20240110
  Serious: Yes (Other)
  Sender: FDA-Public Use
  Company Number: US-PFIZER INC-202300350946

PATIENT
  Age: 46 Year
  Sex: Female
  Weight: 90.72 kg

DRUGS (2)
  1. NURTEC ODT [Suspect]
     Active Substance: RIMEGEPANT SULFATE
     Indication: Migraine
     Dosage: UNK UNK, AS NEEDED
     Dates: start: 202304, end: 20231006
  2. EMGALITY [Concomitant]
     Active Substance: GALCANEZUMAB-GNLM
     Indication: Migraine
     Dosage: 300 MG, MONTHLY

REACTIONS (2)
  - Vertigo [Recovered/Resolved]
  - Dizziness [Unknown]
